FAERS Safety Report 9504253 (Version 1)
Quarter: 2013Q3

REPORT INFORMATION
  Report Type: Spontaneous
  Country: US (occurrence: None)
  Receive Date: 20130905
  Receipt Date: 20130905
  Transmission Date: 20140515
  Serious: Yes (Other)
  Sender: FDA-Public Use
  Company Number: None

PATIENT
  Age: 65 Year
  Sex: Male

DRUGS (2)
  1. DEPAKOTE [Suspect]
     Indication: EPILEPSY
     Dates: start: 200507
  2. TRILEPTAL [Suspect]
     Indication: EPILEPSY
     Dates: start: 200508

REACTIONS (1)
  - Stevens-Johnson syndrome [None]
